FAERS Safety Report 5136786-0 (Version None)
Quarter: 2006Q4

REPORT INFORMATION
  Report Type: 
  Country: None (occurrence: None)
  Receive Date: 20061018
  Receipt Date: 20061004
  Transmission Date: 20070319
  Serious: No
  Sender: FDA-Public Use
  Company Number: HQWYE659505OCT06

PATIENT
  Sex: Male
  Weight: 63.56 kg

DRUGS (1)
  1. REFACTO [Suspect]
     Indication: FACTOR VIII DEFICIENCY
     Dosage: ^2000^ FREQUENCY WAS NOT PROVIDED, INTRAVENOUS
     Route: 042

REACTIONS (4)
  - DRUG EFFECT DECREASED [None]
  - FLUID RETENTION [None]
  - PHARMACEUTICAL PRODUCT COMPLAINT [None]
  - SWELLING [None]
